FAERS Safety Report 12420686 (Version 1)
Quarter: 2016Q2

REPORT INFORMATION
  Report Type: Spontaneous
  Country: AU (occurrence: AU)
  Receive Date: 20160531
  Receipt Date: 20160531
  Transmission Date: 20160815
  Serious: Yes (Other)
  Sender: FDA-Public Use
  Company Number: AU-JNJFOC-20160518854

PATIENT
  Sex: Male

DRUGS (1)
  1. CODRAL COUGH, COLD +FLU DAY + NIGHT (DAY/NIGHT) [Suspect]
     Active Substance: ACETAMINOPHEN\CHLORPHENIRAMINE\DEXTROMETHORPHAN\PSEUDOEPHEDRINE HYDROUS
     Indication: NASOPHARYNGITIS
     Route: 048

REACTIONS (3)
  - Road traffic accident [None]
  - Loss of consciousness [Recovered/Resolved]
  - Somnolence [Unknown]
